FAERS Safety Report 11677841 (Version 1)
Quarter: 2015Q4

REPORT INFORMATION
  Report Type: Spontaneous
  Country: US (occurrence: US)
  Receive Date: 20151027
  Receipt Date: 20151027
  Transmission Date: 20160304
  Serious: No
  Sender: FDA-Public Use
  Company Number: US-ELI_LILLY_AND_COMPANY-US201005006794

PATIENT
  Age: 59 Year
  Sex: Female

DRUGS (4)
  1. CALCIUM [Concomitant]
     Active Substance: CALCIUM
  2. FORTEO [Suspect]
     Active Substance: TERIPARATIDE
     Dosage: 20 UG, DAILY (1/D)
  3. FORTEO [Suspect]
     Active Substance: TERIPARATIDE
     Dosage: 20 UG, DAILY (1/D)
  4. FORTEO [Suspect]
     Active Substance: TERIPARATIDE
     Indication: OSTEOPOROSIS
     Dosage: 20 UG, DAILY (1/D)
     Dates: start: 20100520

REACTIONS (13)
  - Oral discomfort [Unknown]
  - Injection site bruising [Recovered/Resolved]
  - Arthralgia [Unknown]
  - Injection site mass [Recovered/Resolved]
  - Nausea [Unknown]
  - Muscle spasms [Unknown]
  - Feeling abnormal [Unknown]
  - Injection site pain [Recovered/Resolved]
  - Sleep disorder due to a general medical condition [Unknown]
  - Migraine [Unknown]
  - Injection site haemorrhage [Recovered/Resolved]
  - Dizziness [Not Recovered/Not Resolved]
  - Abdominal discomfort [Unknown]

NARRATIVE: CASE EVENT DATE: 20100617
